FAERS Safety Report 7959010-X (Version None)
Quarter: 2011Q4

REPORT INFORMATION
  Report Type: 
  Country: None (occurrence: None)
  Receive Date: 20111130
  Receipt Date: 20111128
  Transmission Date: 20120403
  Serious: Yes (Death)
  Sender: FDA-Public Use
  Company Number: 1022556-2011-00066

PATIENT
  Age: 50 Year
  Sex: Female

DRUGS (3)
  1. SERTRALINE HYDROCHLORIDE [Concomitant]
  2. DIPHENHYDRAMINE HCL [Concomitant]
  3. UNISOM [Suspect]
     Indication: INSOMNIA
     Dosage: ORAL
     Route: 048

REACTIONS (3)
  - DRUG INTERACTION [None]
  - BLOOD ETHANOL INCREASED [None]
  - ACCIDENTAL DEATH [None]
